FAERS Safety Report 4476892-7 (Version None)
Quarter: 2004Q4

REPORT INFORMATION
  Report Type: 
  Country: None (occurrence: None)
  Receive Date: 20041013
  Receipt Date: 20041001
  Transmission Date: 20050328
  Serious: Yes (Death)
  Sender: FDA-Public Use
  Company Number: HQWYE557306OCT04

PATIENT
  Age: 51 Year

DRUGS (3)
  1. EFFEXOR [Suspect]
     Dosage: OVERDOSE AMOUNT UNKNOWN
     Dates: start: 20030101, end: 20030101
  2. COCAINE (COCAINE) [Suspect]
     Dosage: OVER DOSE AMOUNT UNKNOWN
     Dates: start: 20030101, end: 20030101
  3. MORPHINE SULFATE [Suspect]
     Dosage: OVERDOSE AMOUNT UNKNOWN
     Dates: start: 20030101, end: 20030101

REACTIONS (4)
  - CARDIAC ARREST [None]
  - DRUG ABUSER [None]
  - MULTIPLE DRUG OVERDOSE INTENTIONAL [None]
  - RESPIRATORY ARREST [None]
